FAERS Safety Report 9177204 (Version 3)
Quarter: 2013Q2

REPORT INFORMATION
  Report Type: Spontaneous
  Country: ES (occurrence: None)
  Receive Date: 20130319
  Receipt Date: 20130529
  Transmission Date: 20140414
  Serious: Yes (Other)
  Sender: FDA-Public Use
  Company Number: ES-1197169

PATIENT
  Age: 51 Year
  Sex: Female

DRUGS (2)
  1. BSS INTRAOCULAR SOLUTION (BSS) [Suspect]
     Indication: CATARACT OPERATION
     Route: 031
     Dates: start: 20130301
  2. DUOVISC [Concomitant]

REACTIONS (2)
  - Toxic anterior segment syndrome [None]
  - Off label use [None]
